FAERS Safety Report 10713235 (Version 1)
Quarter: 2015Q1

REPORT INFORMATION
  Report Type: Spontaneous
  Country: US (occurrence: None)
  Receive Date: 20150114
  Receipt Date: 20150114
  Transmission Date: 20150721
  Serious: No
  Sender: FDA-Public Use
  Company Number: None

PATIENT
  Age: 33 Year
  Sex: Female
  Weight: 58.97 kg

DRUGS (1)
  1. SUBOXONE [Suspect]
     Active Substance: BUPRENORPHINE HYDROCHLORIDE\NALOXONE HYDROCHLORIDE
     Indication: DEPENDENCE
     Dosage: 6MG (3 STRIPS PER DAY)
     Route: 060
     Dates: start: 20140701, end: 20150113

REACTIONS (2)
  - Oral candidiasis [None]
  - Tongue ulceration [None]

NARRATIVE: CASE EVENT DATE: 20141120
